FAERS Safety Report 10286199 (Version 1)
Quarter: 2014Q3

REPORT INFORMATION
  Report Type: Spontaneous
  Country: DE (occurrence: None)
  Receive Date: 20140703
  Receipt Date: 20140703
  Transmission Date: 20150326
  Serious: Yes (Other)
  Sender: FDA-Public Use
  Company Number: 2014-19866

PATIENT
  Age: 47 Year
  Sex: Female
  Weight: 47 kg

DRUGS (2)
  1. FOLSAEURE (FOLIC ACID) [Concomitant]
  2. EYLEA [Suspect]
     Active Substance: AFLIBERCEPT
     Indication: RETINAL VEIN OCCLUSION
     Route: 031
     Dates: start: 20140407, end: 20140407

REACTIONS (1)
  - Abortion missed [None]

NARRATIVE: CASE EVENT DATE: 2014
